FAERS Safety Report 22721665 (Version 2)
Quarter: 2024Q3

REPORT INFORMATION
  Report Type: Spontaneous
  Country: US (occurrence: US)
  Receive Date: 20230719
  Receipt Date: 20240723
  Transmission Date: 20241016
  Serious: Yes (Hospitalization, Other)
  Sender: OTSUKA
  Company Number: US-OTSUKA-2023_005266

PATIENT
  Age: 34 Year
  Sex: Male

DRUGS (3)
  1. REXULTI [Suspect]
     Active Substance: BREXPIPRAZOLE
     Indication: Product used for unknown indication
     Dosage: 0.5 MG
     Route: 065
     Dates: start: 202301
  2. REXULTI [Suspect]
     Active Substance: BREXPIPRAZOLE
     Dosage: 2 MG
     Route: 065
     Dates: end: 202302
  3. VILAZODONE [Concomitant]
     Active Substance: VILAZODONE
     Indication: Product used for unknown indication
     Dosage: UNK
     Route: 065

REACTIONS (1)
  - Suicidal ideation [Unknown]

NARRATIVE: CASE EVENT DATE: 20230201
